FAERS Safety Report 9918214 (Version 1)
Quarter: 2014Q1

REPORT INFORMATION
  Report Type: Spontaneous
  Country: AU (occurrence: AU)
  Receive Date: 20140223
  Receipt Date: 20140223
  Transmission Date: 20141002
  Serious: Yes (Disabling)
  Sender: FDA-Public Use
  Company Number: AU-009507513-1402AUS008864

PATIENT
  Age: 72 Year
  Sex: Female

DRUGS (6)
  1. ELOCON [Suspect]
     Indication: RASH
     Dosage: UNK
     Route: 061
     Dates: start: 20131128, end: 20131129
  2. DILANTIN [Concomitant]
  3. CEPHALEXIN [Concomitant]
  4. NEXIUM [Concomitant]
     Route: 048
  5. RISPERDAL [Concomitant]
  6. VYTORIN [Concomitant]
     Route: 048

REACTIONS (2)
  - Blister [Not Recovered/Not Resolved]
  - Pruritus [Not Recovered/Not Resolved]
